FAERS Safety Report 10242487 (Version 2)
Quarter: 2014Q2

REPORT INFORMATION
  Report Type: Spontaneous
  Country: US (occurrence: US)
  Receive Date: 20140617
  Receipt Date: 20140617
  Transmission Date: 20141212
  Serious: Yes (Hospitalization)
  Sender: FDA-Public Use
  Company Number: US-009507513-2011SP004773

PATIENT
  Sex: Female
  Weight: 54.43 kg

DRUGS (1)
  1. NUVARING [Suspect]
     Indication: CONTRACEPTION
     Dates: start: 20081202, end: 20090129

REACTIONS (5)
  - Deep vein thrombosis [Recovering/Resolving]
  - Oral surgery [Unknown]
  - Dental care [Unknown]
  - Emotional disorder [Unknown]
  - Mental disorder [Unknown]
